FAERS Safety Report 9300234 (Version 1)
Quarter: 2012Q4

REPORT INFORMATION
  Report Type: Spontaneous
  Country: US (occurrence: None)
  Receive Date: 20121109
  Receipt Date: 20121109
  Transmission Date: 20130627
  Serious: Yes (Other)
  Sender: FDA-Public Use
  Company Number: 2012S1000069

PATIENT
  Age: 66 Year
  Sex: Male

DRUGS (3)
  1. CUBICIN [Suspect]
     Indication: BACTEREMIA
  2. MEROPENEM [Suspect]
     Indication: BACTEREMIA
  3. FLUCONAZOLE [Suspect]
     Indication: BACTEREMIA

REACTIONS (1)
  - Acute myeloid leukaemia recurrent [None]
